FAERS Safety Report 11124610 (Version 2)
Quarter: 2015Q2

REPORT INFORMATION
  Report Type: Spontaneous
  Country: US (occurrence: US)
  Receive Date: 20150520
  Receipt Date: 20150520
  Transmission Date: 20150821
  Serious: No
  Sender: FDA-Public Use
  Company Number: US-JNJFOC-20150502955

PATIENT
  Age: 57 Year
  Sex: Female
  Weight: 99.79 kg

DRUGS (14)
  1. ATORVASTATIN [Concomitant]
     Active Substance: ATORVASTATIN
     Indication: BLOOD CHOLESTEROL INCREASED
     Route: 065
  2. CALCIUM [Concomitant]
     Active Substance: CALCIUM
     Route: 048
  3. MAGNESIUM [Concomitant]
     Active Substance: MAGNESIUM
     Route: 048
  4. GLUCOSAMINE / CHONDROITIN [Concomitant]
     Route: 048
  5. OXYCODONE/ACETAMINOPHEN [Concomitant]
     Active Substance: ACETAMINOPHEN\OXYCODONE HYDROCHLORIDE
     Indication: PAIN
     Dosage: 5/325MG/ -/ 5/325MG/ UU UUU UUUU ONG??TWICE DAILY AS NEEDED
     Route: 048
  6. CELEBREX [Concomitant]
     Active Substance: CELECOXIB
     Indication: PAIN
     Route: 065
  7. OMEPRAZOLE. [Concomitant]
     Active Substance: OMEPRAZOLE
     Route: 065
  8. ZINC [Concomitant]
     Active Substance: ZINC\ZINC CHLORIDE
     Route: 048
  9. DURAGESIC [Suspect]
     Active Substance: FENTANYL
     Indication: PAIN
     Route: 062
     Dates: start: 201504
  10. GABAPENTIN. [Concomitant]
     Active Substance: GABAPENTIN
     Indication: NEURALGIA
     Route: 048
  11. LAMOTRIGINE. [Concomitant]
     Active Substance: LAMOTRIGINE
     Indication: DEPRESSION
     Route: 048
  12. DULOXETINE [Concomitant]
     Active Substance: DULOXETINE
     Route: 065
  13. VITAMIN B12 [Concomitant]
     Active Substance: CYANOCOBALAMIN
     Route: 065
  14. CYCLOBENZAPRINE [Concomitant]
     Active Substance: CYCLOBENZAPRINE
     Indication: BACK PAIN
     Route: 048

REACTIONS (3)
  - Wrong technique in drug usage process [Unknown]
  - Product adhesion issue [Unknown]
  - Underdose [Unknown]

NARRATIVE: CASE EVENT DATE: 201504
